FAERS Safety Report 9034633 (Version 1)
Quarter: 2013Q1

REPORT INFORMATION
  Report Type: Spontaneous
  Country: US (occurrence: US)
  Receive Date: 20130128
  Receipt Date: 20130128
  Transmission Date: 20140127
  Serious: Yes (Hospitalization)
  Sender: FDA-Public Use
  Company Number: US-GLAXOSMITHKLINE-A1008839A

PATIENT
  Age: 65 Year
  Sex: Male

DRUGS (17)
  1. ADVAIR [Suspect]
     Indication: CHRONIC OBSTRUCTIVE PULMONARY DISEASE
     Dosage: 1PUFF TWICE PER DAY
     Route: 055
     Dates: start: 2008
  2. SYMBICORT [Concomitant]
  3. COMBIVENT [Concomitant]
  4. PROVENTIL [Concomitant]
  5. LEVOTHYROXINE [Concomitant]
  6. SYNTHROID [Concomitant]
  7. GUAIFENESIN [Concomitant]
  8. SIMVASTATIN [Concomitant]
  9. DIVALPROEX SODIUM [Concomitant]
  10. ASPIRIN [Concomitant]
  11. METAMUCIL [Concomitant]
  12. AMLODIPINE BESYLATE [Concomitant]
  13. FINASTERIDE [Concomitant]
  14. RANITIDINE [Concomitant]
  15. FOLIC ACID [Concomitant]
  16. MULTIVITAMIN [Concomitant]
  17. UNSPECIFIED MEDICATION [Concomitant]

REACTIONS (10)
  - Chest pain [Unknown]
  - Headache [Unknown]
  - Dyspnoea [Not Recovered/Not Resolved]
  - Cough [Unknown]
  - Chills [Unknown]
  - Pyrexia [Unknown]
  - Myalgia [Not Recovered/Not Resolved]
  - Ocular icterus [Unknown]
  - Vomiting [Unknown]
  - Off label use [Unknown]
